FAERS Safety Report 7235054-0 (Version None)
Quarter: 2011Q1

REPORT INFORMATION
  Report Type: 
  Country: None (occurrence: None)
  Receive Date: 20110114
  Receipt Date: 20110114
  Transmission Date: 20110831
  Serious: No
  Sender: FDA-Public Use
  Company Number: None

PATIENT
  Age: 68 Year
  Sex: Female
  Weight: 89.3586 kg

DRUGS (8)
  1. GLYPZIDE [Concomitant]
  2. MELLARIL [Concomitant]
  3. GLUCOPHAGE [Concomitant]
  4. MAXZIDE [Concomitant]
  5. ARIMIDEX [Suspect]
     Indication: MASTECTOMY
     Dosage: 1MG TABLET 1 PER DAY PO
     Route: 048
     Dates: start: 20100912, end: 20101221
  6. CHOLESTYRAMINE POWDER [Concomitant]
  7. XANAX [Concomitant]
  8. CYMBALTA [Concomitant]

REACTIONS (22)
  - ASTHENIA [None]
  - BACK PAIN [None]
  - CONFUSIONAL STATE [None]
  - SPEECH DISORDER [None]
  - ARTHROPATHY [None]
  - DYSSTASIA [None]
  - DRUG INEFFECTIVE [None]
  - INSOMNIA [None]
  - DEPRESSION [None]
  - WEIGHT INCREASED [None]
  - ARRHYTHMIA [None]
  - MUSCULOSKELETAL PAIN [None]
  - SEBORRHOEA [None]
  - BALANCE DISORDER [None]
  - BLOOD PRESSURE INCREASED [None]
  - PAIN IN EXTREMITY [None]
  - DYSACUSIS [None]
  - HOT FLUSH [None]
  - OEDEMA PERIPHERAL [None]
  - QUALITY OF LIFE DECREASED [None]
  - ARTHRALGIA [None]
  - FATIGUE [None]
